FAERS Safety Report 17797094 (Version 1)
Quarter: 2020Q2

REPORT INFORMATION
  Report Type: Spontaneous
  Country: CA (occurrence: CA)
  Receive Date: 20200518
  Receipt Date: 20200518
  Transmission Date: 20200714
  Serious: Yes (Hospitalization)
  Sender: FDA-Public Use
  Company Number: CA-ROCHE-2600818

PATIENT
  Age: 54 Year
  Sex: Female

DRUGS (15)
  1. ISAVUCONAZOLE [Concomitant]
     Active Substance: ISAVUCONAZOLE
     Route: 048
  2. VORICONAZOLE. [Suspect]
     Active Substance: VORICONAZOLE
     Route: 048
  3. METRONIDAZOLE. [Concomitant]
     Active Substance: METRONIDAZOLE
     Indication: BRAIN ABSCESS
     Route: 042
  4. PREDNISONE. [Suspect]
     Active Substance: PREDNISONE
     Indication: GLOMERULONEPHRITIS
     Route: 065
  5. VORICONAZOLE. [Suspect]
     Active Substance: VORICONAZOLE
     Indication: ASPERGILLUS INFECTION
     Route: 042
  6. ISAVUCONAZOLE [Concomitant]
     Active Substance: ISAVUCONAZOLE
     Indication: ASPERGILLUS INFECTION
     Route: 048
  7. MOXIFLOXACIN. [Concomitant]
     Active Substance: MOXIFLOXACIN
     Indication: NOCARDIOSIS
     Route: 042
  8. CEFTRIAXONE. [Concomitant]
     Active Substance: CEFTRIAXONE
     Indication: BRAIN ABSCESS
     Route: 042
  9. PIPERACILLIN AND TAZOBACTAM [Concomitant]
     Active Substance: PIPERACILLIN SODIUM\TAZOBACTAM SODIUM
     Indication: GASTROINTESTINAL PERFORATION
     Route: 042
  10. CYCLOPHOSPHAMIDE. [Suspect]
     Active Substance: CYCLOPHOSPHAMIDE
     Indication: GLOMERULONEPHRITIS
     Route: 065
  11. MEROPENEM. [Concomitant]
     Active Substance: MEROPENEM
     Indication: NOCARDIOSIS
     Route: 042
  12. MEROPENEM. [Concomitant]
     Active Substance: MEROPENEM
     Route: 042
  13. RITUXIMAB. [Suspect]
     Active Substance: RITUXIMAB
     Indication: GLOMERULONEPHRITIS
     Route: 065
  14. MICAFUNGIN. [Concomitant]
     Active Substance: MICAFUNGIN SODIUM
     Indication: FUNGAL INFECTION
     Route: 042
  15. VANCOMYCIN [Concomitant]
     Active Substance: VANCOMYCIN
     Indication: NOSOCOMIAL INFECTION
     Route: 042

REACTIONS (14)
  - Brain abscess [Unknown]
  - Cerebral aspergillosis [Unknown]
  - Toxicity to various agents [Unknown]
  - Acute kidney injury [Unknown]
  - Aspergillus infection [Unknown]
  - Drug level below therapeutic [Unknown]
  - Periostitis [Unknown]
  - Geotrichum infection [Unknown]
  - Candida infection [Unknown]
  - Glomerulonephritis [Unknown]
  - Drug ineffective [Unknown]
  - Condition aggravated [Unknown]
  - Immune reconstitution inflammatory syndrome [Unknown]
  - Neutropenia [Unknown]
